FAERS Safety Report 9192377 (Version 2)
Quarter: 2013Q4

REPORT INFORMATION
  Report Type: Spontaneous
  Country: US (occurrence: US)
  Receive Date: 20130327
  Receipt Date: 20131127
  Transmission Date: 20140711
  Serious: Yes (Other)
  Sender: FDA-Public Use
  Company Number: US-BAYER-2013-038254

PATIENT
  Age: 25 Year
  Sex: Female

DRUGS (6)
  1. YAZ [Suspect]
     Dosage: UNK
  2. YASMIN [Suspect]
     Dosage: UNK
  3. OCELLA [Suspect]
     Dosage: UNK
  4. VALTREX [Concomitant]
     Dosage: 1 G, UNK
     Dates: start: 20080612
  5. BUPROPION SR [Concomitant]
     Dosage: 100 MG, UNK
     Dates: start: 20080605
  6. PAROXETINE [Concomitant]
     Dosage: 20 MG, UNK
     Dates: start: 20071113, end: 20080603

REACTIONS (5)
  - Gallbladder injury [None]
  - Cholecystitis chronic [None]
  - Injury [None]
  - Pain [None]
  - Pain [None]
